FAERS Safety Report 9633088 (Version 1)
Quarter: 2013Q4

REPORT INFORMATION
  Report Type: Report from Study
  Country: BR (occurrence: BR)
  Receive Date: 20131018
  Receipt Date: 20131018
  Transmission Date: 20140711
  Serious: Yes (Other)
  Sender: FDA-Public Use
  Company Number: BR-ROCHE-1288884

PATIENT
  Age: 42 Year
  Sex: Male

DRUGS (4)
  1. DIAZEPAM [Suspect]
     Indication: SCHIZOPHRENIA
     Route: 065
  2. NEOZINE [Interacting]
     Indication: SCHIZOPHRENIA
     Route: 065
  3. AMPLICTIL [Concomitant]
     Route: 065
  4. FLUPHENAZINE [Concomitant]

REACTIONS (13)
  - Extrapyramidal disorder [Unknown]
  - Drug interaction [Unknown]
  - Social avoidant behaviour [Unknown]
  - Flat affect [Unknown]
  - Activities of daily living impaired [Unknown]
  - Apathy [Unknown]
  - Disturbance in attention [Unknown]
  - Memory impairment [Unknown]
  - Thinking abnormal [Unknown]
  - Sleep disorder [Unknown]
  - Neglect of personal appearance [Unknown]
  - Cognitive disorder [Unknown]
  - Poor personal hygiene [Unknown]
